FAERS Safety Report 4676565-1 (Version None)
Quarter: 2005Q2

REPORT INFORMATION
  Report Type: 
  Country: None (occurrence: None)
  Receive Date: 20050526
  Receipt Date: 20050510
  Transmission Date: 20051028
  Serious: Yes (Other)
  Sender: FDA-Public Use
  Company Number: TRP_0121_2005

PATIENT
  Age: 43 Year
  Sex: Male

DRUGS (3)
  1. RIBAVIRIN [Suspect]
     Indication: HEPATITIS C VIRUS
     Dosage: 600 MG DAY PO
     Route: 048
  2. INTERFERON ALFA 2A [Suspect]
     Indication: HEPATITIS C VIRUS
     Dosage: 3 MU 3XWK SC
     Route: 058
  3. INTERFERON ALFA 2A [Suspect]
     Indication: HEPATITIS C VIRUS
     Dosage: 6 MU QDAY SC
     Route: 058

REACTIONS (4)
  - FACIAL PALSY [None]
  - HYPERACUSIS [None]
  - PARAESTHESIA [None]
  - PARAESTHESIA ORAL [None]
